FAERS Safety Report 5169404-6 (Version None)
Quarter: 2006Q4

REPORT INFORMATION
  Report Type: 
  Country: None (occurrence: None)
  Receive Date: 20061201
  Receipt Date: 20061116
  Transmission Date: 20070319
  Serious: Yes (Other)
  Sender: FDA-Public Use
  Company Number: 2006AP001023

PATIENT
  Age: 64 Year
  Sex: Female

DRUGS (4)
  1. CLOPIDOGREL [Suspect]
     Indication: DRUG USE FOR UNKNOWN INDICATION
     Dosage: 75 MG; 1X; PO
     Route: 048
     Dates: start: 20061023, end: 20061023
  2. LISINOPRIL [Concomitant]
  3. ROSUVASTATIN [Concomitant]
  4. CHLORPROMAZINE [Concomitant]

REACTIONS (3)
  - CARDIAC MURMUR [None]
  - CHEST PAIN [None]
  - HEART RATE IRREGULAR [None]
